FAERS Safety Report 4899395-4 (Version None)
Quarter: 2006Q1

REPORT INFORMATION
  Report Type: 
  Country: None (occurrence: None)
  Receive Date: 20060202
  Receipt Date: 20060123
  Transmission Date: 20060701
  Serious: Yes (Hospitalization)
  Sender: FDA-Public Use
  Company Number: ES-NOVOPROD-250274

PATIENT
  Age: 78 Year
  Sex: Male

DRUGS (4)
  1. PRANDIN [Suspect]
     Indication: DRUG USE FOR UNKNOWN INDICATION
     Dosage: 8 MG, QD
  2. METFORMINE ^MERCK^ [Suspect]
     Indication: DRUG USE FOR UNKNOWN INDICATION
     Dosage: 1700 MG, QD
  3. DIGOXIN [Suspect]
     Indication: DRUG USE FOR UNKNOWN INDICATION
     Dosage: .125 MG, QD
  4. TORSEMIDE [Suspect]
     Indication: DRUG USE FOR UNKNOWN INDICATION
     Dosage: 10 MG, QD

REACTIONS (1)
  - HEPATITIS [None]
